FAERS Safety Report 15785142 (Version 1)
Quarter: 2019Q1

REPORT INFORMATION
  Report Type: Spontaneous
  Country: US (occurrence: US)
  Receive Date: 20190102
  Receipt Date: 20190102
  Transmission Date: 20190417
  Serious: Yes (Life-Threatening)
  Sender: FDA-Public Use
  Company Number: None

PATIENT
  Age: 39 Year
  Sex: Male
  Weight: 92.25 kg

DRUGS (4)
  1. CLOBAZAM. [Suspect]
     Active Substance: CLOBAZAM
     Indication: EPILEPTIC ENCEPHALOPATHY
     Route: 048
     Dates: start: 20181201, end: 20190102
  2. LACOSAMIDE. [Concomitant]
     Active Substance: LACOSAMIDE
  3. LEVETIRACETAM. [Concomitant]
     Active Substance: LEVETIRACETAM
  4. FYCOMPA [Concomitant]
     Active Substance: PERAMPANEL

REACTIONS (2)
  - Product substitution issue [None]
  - Epilepsy [None]

NARRATIVE: CASE EVENT DATE: 20181205
